FAERS Safety Report 17924605 (Version 1)
Quarter: 2020Q2

REPORT INFORMATION
  Report Type: Other
  Country: US (occurrence: US)
  Receive Date: 20200622
  Receipt Date: 20200622
  Transmission Date: 20200714
  Serious: Yes (Hospitalization, Other)
  Sender: FDA-Public Use
  Company Number: US-ACORDA-ACO_164633_2020

PATIENT
  Age: 74 Year
  Sex: Male

DRUGS (3)
  1. INBRIJA [Suspect]
     Active Substance: LEVODOPA
     Indication: PARKINSON^S DISEASE
     Dosage: 2 CAPSULES (84MG), PRN. NOT TO EXCEED 5 DOSES A DAY
     Dates: start: 20200401
  2. INBRIJA [Suspect]
     Active Substance: LEVODOPA
     Indication: ON AND OFF PHENOMENON
  3. CARBIDOPA/LEVODOPA [Concomitant]
     Active Substance: CARBIDOPA\LEVODOPA
     Indication: PRODUCT USED FOR UNKNOWN INDICATION
     Dosage: 25/250 MG 1 PILL 3X/DAY
     Route: 065

REACTIONS (10)
  - Tremor [Recovering/Resolving]
  - Pyrexia [Recovering/Resolving]
  - Impaired healing [Unknown]
  - Sepsis [Recovering/Resolving]
  - Feeling cold [Recovering/Resolving]
  - Cognitive disorder [Unknown]
  - Catheter site infection [Unknown]
  - Cough [Recovered/Resolved]
  - Localised infection [Unknown]
  - Skin ulcer [Unknown]

NARRATIVE: CASE EVENT DATE: 202003
